FAERS Safety Report 5830845-2 (Version None)
Quarter: 2008Q3

REPORT INFORMATION
  Report Type: 
  Country: None (occurrence: None)
  Receive Date: 20080801
  Receipt Date: 20080125
  Transmission Date: 20090109
  Serious: Yes (Other)
  Sender: FDA-Public Use
  Company Number: US-BRISTOL-MYERS SQUIBB COMPANY-14027189

PATIENT
  Sex: Female

DRUGS (1)
  1. COUMADIN [Suspect]
     Dosage: FROM 06-OCT TO 10-OCT 7.5. ON 11-OCT DOSE ADJUSTED TO 5 MG THEN UPGRADED THE DOSE TO 6 MG A DAY.

REACTIONS (2)
  - DIZZINESS [None]
  - HAEMORRHAGE [None]
